FAERS Safety Report 6579390-X (Version None)
Quarter: 2010Q1

REPORT INFORMATION
  Report Type: 
  Country: None (occurrence: None)
  Receive Date: 20100203
  Receipt Date: 20100118
  Transmission Date: 20100710
  Serious: Yes (Death)
  Sender: FDA-Public Use
  Company Number: B0627563A

PATIENT
  Age: 57 Year
  Sex: Female

DRUGS (4)
  1. CIMETIDINE [Suspect]
     Dosage: ORAL
     Route: 048
  2. CODEINE SULFATE [Suspect]
     Dosage: ORAL
     Route: 048
  3. AMPHETAMINE SULFATE TAB [Suspect]
     Dosage: ORAL
     Route: 048
  4. MULTIVITAMINE (FORMULATION UNKNOWN) (MULTIVITAMIN) [Suspect]
     Dosage: ORAL
     Route: 048

REACTIONS (1)
  - DEATH [None]
